FAERS Safety Report 5862902-9 (Version None)
Quarter: 2008Q3

REPORT INFORMATION
  Report Type: 
  Country: None (occurrence: None)
  Receive Date: 20080828
  Receipt Date: 20080821
  Transmission Date: 20090109
  Serious: Yes (Hospitalization)
  Sender: FDA-Public Use
  Company Number: A0742955A

PATIENT
  Age: 54 Year
  Sex: Male
  Weight: 86.4 kg

DRUGS (26)
  1. AVANDIA [Suspect]
     Route: 048
     Dates: start: 20000101, end: 20080101
  2. LOTREL [Concomitant]
  3. ENALAPRIL MALEATE [Concomitant]
  4. HYZAAR [Concomitant]
  5. DOLOGESIC [Concomitant]
  6. TRAMADOL HCL [Concomitant]
  7. CRESTOR [Concomitant]
  8. PROTONIX [Concomitant]
  9. CLARITHROMYCIN [Concomitant]
  10. CYCLOBENZAPRINE HCL [Concomitant]
  11. BUTALBITAL [Concomitant]
  12. PREVACID [Concomitant]
  13. PLAVIX [Concomitant]
  14. ISOSORBIDE [Concomitant]
  15. CARAFATE [Concomitant]
  16. AVALIDE [Concomitant]
  17. LIPITOR [Concomitant]
  18. LEVAQUIN [Concomitant]
  19. ZOLPIDEM [Concomitant]
  20. OXYCODONE HCL [Concomitant]
  21. TUSNEL [Concomitant]
  22. BIAXIN [Concomitant]
  23. METOPROLOL TARTRATE [Concomitant]
     Dates: start: 20071129, end: 20080101
  24. ATENOLOL [Concomitant]
     Dates: start: 20071020, end: 20071101
  25. GLUCOPHAGE [Concomitant]
     Dates: start: 20000101, end: 20060101
  26. METFORMIN HCL [Concomitant]
     Dates: start: 20060801, end: 20060901

REACTIONS (1)
  - MYOCARDIAL INFARCTION [None]
